FAERS Safety Report 9797563 (Version 2)
Quarter: 2014Q1

REPORT INFORMATION
  Report Type: Spontaneous
  Country: US (occurrence: US)
  Receive Date: 20140106
  Receipt Date: 20140106
  Transmission Date: 20141002
  Serious: Yes (Other)
  Sender: FDA-Public Use
  Company Number: PHEH2013US019021

PATIENT
  Sex: Female

DRUGS (6)
  1. DIOVAN [Suspect]
     Dosage: 160 MG, QD
     Route: 048
     Dates: end: 2002
  2. DIOVAN [Suspect]
     Dosage: 160 MG, QD
     Route: 048
     Dates: start: 2008
  3. DIOVAN HCT [Suspect]
     Dosage: 0.25 DF (160/ 12,5 MG), IRD
     Route: 048
     Dates: start: 2002, end: 2008
  4. DIOVAN HCT [Suspect]
     Dosage: 0.5 DF (160/ 12,5 MG), IRD
     Route: 048
     Dates: start: 2002, end: 2008
  5. B12-VITAMIIN [Concomitant]
     Dosage: UNK UKN, UNK
  6. LIPITOR [Concomitant]
     Dosage: UNK UKN, UNK
     Dates: end: 2002

REACTIONS (7)
  - Rib fracture [Unknown]
  - Chronic obstructive pulmonary disease [Unknown]
  - Hypertension [Recovering/Resolving]
  - Fluid retention [Unknown]
  - Dry skin [Unknown]
  - Skin exfoliation [Unknown]
  - Abdominal discomfort [Unknown]
